FAERS Safety Report 24242373 (Version 1)
Quarter: 2024Q3

REPORT INFORMATION
  Report Type: Spontaneous
  Country: US (occurrence: US)
  Receive Date: 20240823
  Receipt Date: 20240823
  Transmission Date: 20241016
  Serious: No
  Sender: APOTEX
  Company Number: US-APOTEX-2023AP016527

PATIENT
  Age: 45 Year
  Sex: Male

DRUGS (16)
  1. TEMOZOLOMIDE [Suspect]
     Active Substance: TEMOZOLOMIDE
     Indication: Isocitrate dehydrogenase gene mutation
     Dosage: 75 MILLIGRAM/SQ. METER, QD (THERAPY DURATION: 4.2MONTHS)
     Route: 065
  2. TEMOZOLOMIDE [Suspect]
     Active Substance: TEMOZOLOMIDE
     Indication: Glioblastoma
  3. OLAPARIB [Suspect]
     Active Substance: OLAPARIB
     Indication: Isocitrate dehydrogenase gene mutation
     Dosage: 150 MILLIGRAM, T.I.W (THERAPY DURATION: 4.2 MONTHS)
     Route: 065
  4. OLAPARIB [Suspect]
     Active Substance: OLAPARIB
     Indication: Glioblastoma
  5. PEMBROLIZUMAB [Suspect]
     Active Substance: PEMBROLIZUMAB
     Indication: Isocitrate dehydrogenase gene mutation
     Dosage: UNK (THERAPY DURATION: 4.2 MONTHS)
     Route: 065
  6. PEMBROLIZUMAB [Suspect]
     Active Substance: PEMBROLIZUMAB
     Indication: Glioblastoma
  7. LAPATINIB [Suspect]
     Active Substance: LAPATINIB
     Indication: Isocitrate dehydrogenase gene mutation
     Dosage: UNK (THERAPY DURATION: 4.2 MONTHS)
     Route: 065
  8. LAPATINIB [Suspect]
     Active Substance: LAPATINIB
     Indication: Glioblastoma
  9. LOMUSTINE [Suspect]
     Active Substance: LOMUSTINE
     Indication: Isocitrate dehydrogenase gene mutation
     Dosage: UNK (THERAPY DURATION: 4.2 MONTHS)
     Route: 065
  10. LOMUSTINE [Suspect]
     Active Substance: LOMUSTINE
     Indication: Glioblastoma
  11. REGORAFENIB [Suspect]
     Active Substance: REGORAFENIB
     Indication: Isocitrate dehydrogenase gene mutation
     Dosage: UNK (THERAPY DURATION: 4.2 MONTHS)
     Route: 065
  12. REGORAFENIB [Suspect]
     Active Substance: REGORAFENIB
     Indication: Glioblastoma
  13. BEVACIZUMAB [Suspect]
     Active Substance: BEVACIZUMAB
     Indication: Isocitrate dehydrogenase gene mutation
     Dosage: UNK (THERAPPY DURATION: 4.2 MONTHS)
     Route: 065
  14. BEVACIZUMAB [Suspect]
     Active Substance: BEVACIZUMAB
     Indication: Glioblastoma
  15. CARBOPLATIN [Suspect]
     Active Substance: CARBOPLATIN
     Indication: Isocitrate dehydrogenase gene mutation
     Dosage: UNK (THERAPY DURATION: 4.2 MONTHS
     Route: 065
  16. CARBOPLATIN [Suspect]
     Active Substance: CARBOPLATIN
     Indication: Glioblastoma

REACTIONS (6)
  - Mucosal inflammation [Unknown]
  - Dyspepsia [Unknown]
  - Insomnia [Unknown]
  - Fatigue [Unknown]
  - Constipation [Unknown]
  - Nausea [Unknown]
